FAERS Safety Report 16079314 (Version 2)
Quarter: 2020Q2

REPORT INFORMATION
  Report Type: Report from Study
  Country: US (occurrence: US)
  Receive Date: 20190315
  Receipt Date: 20200404
  Transmission Date: 20200713
  Serious: Yes (Life-Threatening, Other)
  Sender: FDA-Public Use
  Company Number: PHEH2019US011535

PATIENT
  Age: 68 Year
  Sex: Female

DRUGS (1)
  1. PROMACTA [Suspect]
     Active Substance: ELTROMBOPAG OLAMINE
     Indication: PRODUCT USED FOR UNKNOWN INDICATION
     Dosage: UNK
     Route: 065
     Dates: start: 20090301

REACTIONS (4)
  - Diabetes mellitus [Unknown]
  - Immune system disorder [Unknown]
  - Hypertension [Unknown]
  - Apparent death [Unknown]

NARRATIVE: CASE EVENT DATE: 20150401
